FAERS Safety Report 14923714 (Version 1)
Quarter: 2018Q2

REPORT INFORMATION
  Report Type: Spontaneous
  Country: US (occurrence: US)
  Receive Date: 20180522
  Receipt Date: 20180522
  Transmission Date: 20180711
  Serious: No
  Sender: FDA-Public Use
  Company Number: US-BAYER-2018-097673

PATIENT
  Age: 28 Year
  Sex: Female

DRUGS (2)
  1. MIRENA [Suspect]
     Active Substance: LEVONORGESTREL
     Dosage: 20 MCG/24HR, CONT
     Route: 015
     Dates: start: 20170612, end: 20180424
  2. MIRENA [Suspect]
     Active Substance: LEVONORGESTREL

REACTIONS (2)
  - Pelvic pain [None]
  - Infection [None]

NARRATIVE: CASE EVENT DATE: 20180424
